FAERS Safety Report 18152319 (Version 2)
Quarter: 2020Q3

REPORT INFORMATION
  Report Type: Spontaneous
  Country: US (occurrence: US)
  Receive Date: 20200814
  Receipt Date: 20200922
  Transmission Date: 20201103
  Serious: No
  Sender: FDA-Public Use
  Company Number: US-009507513-2007USA011813

PATIENT
  Age: 59 Year
  Sex: Male

DRUGS (3)
  1. PREGNYL [Suspect]
     Active Substance: CHORIOGONADOTROPIN ALFA
     Indication: INFERTILITY MALE
     Dosage: 750 UNITS TWICE A WEEK
     Route: 030
     Dates: start: 2017
  2. PREGNYL [Suspect]
     Active Substance: CHORIOGONADOTROPIN ALFA
     Dosage: 375 UNITS (HALF DOSE) (DOSE REPORTED AS 750 UNITS TWICE A WEEK)
     Route: 030
     Dates: start: 20200720
  3. PREGNYL [Suspect]
     Active Substance: CHORIOGONADOTROPIN ALFA
     Dosage: 375 UNITS (HALF DOSE) (DOSE REPORTED AS 750 UNITS TWICE A WEEK)
     Route: 030
     Dates: start: 20200723

REACTIONS (10)
  - Nausea [Recovered/Resolved]
  - Product availability issue [Unknown]
  - Night sweats [Recovered/Resolved]
  - Fatigue [Recovered/Resolved]
  - Product dose omission issue [Unknown]
  - Product use issue [Unknown]
  - Product use issue [Unknown]
  - Lethargy [Recovered/Resolved]
  - Asthenia [Recovered/Resolved]
  - Irritability [Recovered/Resolved]

NARRATIVE: CASE EVENT DATE: 20200720
